FAERS Safety Report 10022679 (Version 1)
Quarter: 2014Q1

REPORT INFORMATION
  Report Type: Spontaneous
  Country: US (occurrence: US)
  Receive Date: 20140319
  Receipt Date: 20140319
  Transmission Date: 20141002
  Serious: No
  Sender: FDA-Public Use
  Company Number: US-PFIZER INC-2014075585

PATIENT
  Sex: Male

DRUGS (1)
  1. ADVIL [Suspect]
     Dosage: 200 MG, SINGLE (ONLY ONCE)
     Route: 048
     Dates: start: 20140312, end: 20140313

REACTIONS (2)
  - Urticaria [Unknown]
  - Local swelling [Unknown]
